FAERS Safety Report 25591686 (Version 1)
Quarter: 2025Q3

REPORT INFORMATION
  Report Type: Spontaneous
  Country: EG (occurrence: EG)
  Receive Date: 20250722
  Receipt Date: 20250722
  Transmission Date: 20251021
  Serious: Yes (Other)
  Sender: BIOCON
  Company Number: EG-EGYPT REGULATORY AGENCY (CAPA)-BBL2025003849

PATIENT

DRUGS (2)
  1. HULIO [Suspect]
     Active Substance: ADALIMUMAB-FKJP
     Indication: Colitis ulcerative
     Dosage: 1 DOSAGE FORMS, Q2W (1 PEN OR SYRINGE EVERY 2 WEEKS)
     Route: 058
  2. HULIO [Suspect]
     Active Substance: ADALIMUMAB-FKJP

REACTIONS (4)
  - Musculoskeletal stiffness [Not Recovered/Not Resolved]
  - Pain [Not Recovered/Not Resolved]
  - Haemorrhage [Not Recovered/Not Resolved]
  - Product dose omission issue [Unknown]

NARRATIVE: CASE EVENT DATE: 20250710
